FAERS Safety Report 25668265 (Version 2)
Quarter: 2025Q3

REPORT INFORMATION
  Report Type: Report from Study
  Country: US (occurrence: US)
  Receive Date: 20250812
  Receipt Date: 20250908
  Transmission Date: 20251020
  Serious: Yes (Other)
  Sender: SUNOVION
  Company Number: US-SUMITOMO PHARMA SWITZERLAND GMBH-2025SPA008350

PATIENT
  Age: 78 Year
  Sex: Male

DRUGS (9)
  1. ORGOVYX [Suspect]
     Active Substance: RELUGOLIX
     Indication: Prostate cancer
     Route: 048
     Dates: start: 20250616, end: 20250616
  2. ORGOVYX [Suspect]
     Active Substance: RELUGOLIX
     Route: 048
  3. AMLODIPINE [Concomitant]
     Active Substance: AMLODIPINE BESYLATE
  4. ELIQUIS [Concomitant]
     Active Substance: APIXABAN
  5. LISINOPRIL [Concomitant]
     Active Substance: LISINOPRIL
  6. VITAMINS [Concomitant]
     Active Substance: VITAMINS
  7. MINERALS\VITAMINS [Concomitant]
     Active Substance: MINERALS\VITAMINS
  8. XYZAL [Concomitant]
     Active Substance: LEVOCETIRIZINE DIHYDROCHLORIDE
  9. NUBEQA [Concomitant]
     Active Substance: DAROLUTAMIDE

REACTIONS (4)
  - Orthognathic surgery [Unknown]
  - Rash [Unknown]
  - Headache [Recovered/Resolved]
  - Product dose omission issue [Recovered/Resolved]
